FAERS Safety Report 4960433-1 (Version None)
Quarter: 2006Q2

REPORT INFORMATION
  Report Type: 
  Country: None (occurrence: None)
  Receive Date: 20060403
  Receipt Date: 20060327
  Transmission Date: 20061013
  Serious: Yes (Hospitalization)
  Sender: FDA-Public Use
  Company Number: GB-RB-2995-2006

PATIENT
  Age: 26 Year
  Sex: Male
  Weight: 70 kg

DRUGS (2)
  1. BUPRENORPHINE HCL [Suspect]
     Indication: DRUG USE FOR UNKNOWN INDICATION
     Dosage: 32 X 8MG TABLETS, 17 X 2MG - TOTAL 290MG - SWALLOWED WRAPPED IN CLINGFILM
     Route: 048
     Dates: start: 20060131, end: 20060131
  2. METHADONE HCL [Concomitant]
     Indication: DRUG DEPENDENCE
     Route: 048
     Dates: start: 20040101

REACTIONS (6)
  - ALANINE AMINOTRANSFERASE INCREASED [None]
  - BILIARY COLIC [None]
  - BLOOD ALKALINE PHOSPHATASE INCREASED [None]
  - GAMMA-GLUTAMYLTRANSFERASE INCREASED [None]
  - MEDICATION RESIDUE [None]
  - OVERDOSE [None]
